FAERS Safety Report 21171762 (Version 3)
Quarter: 2022Q3

REPORT INFORMATION
  Report Type: Spontaneous
  Country: US (occurrence: US)
  Receive Date: 20220804
  Receipt Date: 20220920
  Transmission Date: 20221026
  Serious: Yes (Other)
  Sender: FDA-Public Use
  Company Number: US-PFIZER INC-202201026034

PATIENT
  Age: 77 Year
  Sex: Female
  Weight: 59.42 kg

DRUGS (4)
  1. PAXLOVID [Suspect]
     Active Substance: NIRMATRELVIR\RITONAVIR
     Indication: COVID-19 treatment
     Dosage: UNK
     Route: 048
     Dates: start: 20220726, end: 20220726
  2. ALPRAZOLAM [Concomitant]
     Active Substance: ALPRAZOLAM
     Indication: Anxiety
     Dosage: THREE QUARTERS OF A MILLIGRAM, EVERY NIGHT BEFORE BED
  3. ATENOLOL [Concomitant]
     Active Substance: ATENOLOL
     Indication: Blood pressure abnormal
     Dosage: 25 MG (AT NIGHT)
  4. AMLODIPINE [Concomitant]
     Active Substance: AMLODIPINE BESYLATE
     Indication: Blood pressure abnormal
     Dosage: 2.5 MG (AT NIGHT)

REACTIONS (10)
  - Oropharyngeal discomfort [Recovering/Resolving]
  - Aphonia [Recovering/Resolving]
  - Pyrexia [Not Recovered/Not Resolved]
  - Malaise [Recovering/Resolving]
  - Hypersensitivity [Recovering/Resolving]
  - Dysphonia [Recovering/Resolving]
  - Weight decreased [Recovering/Resolving]
  - Cough [Recovering/Resolving]
  - Dysphagia [Recovering/Resolving]
  - Feeding disorder [Recovering/Resolving]

NARRATIVE: CASE EVENT DATE: 20220726
